FAERS Safety Report 7062918-3 (Version None)
Quarter: 2010Q4

REPORT INFORMATION
  Report Type: 
  Country: None (occurrence: None)
  Receive Date: 20101026
  Receipt Date: 20100225
  Transmission Date: 20110411
  Serious: No
  Sender: FDA-Public Use
  Company Number: US-PFIZER INC-2010026270

PATIENT
  Sex: Male
  Weight: 65.8 kg

DRUGS (2)
  1. LIPITOR [Suspect]
     Indication: BLOOD CHOLESTEROL INCREASED
     Dosage: 20 MG, DAILY
     Route: 048
     Dates: start: 20020101, end: 20090901
  2. SYNTHROID [Concomitant]
     Dosage: UNK

REACTIONS (1)
  - MYALGIA [None]
